FAERS Safety Report 5891882-5 (Version None)
Quarter: 2008Q3

REPORT INFORMATION
  Report Type: 
  Country: None (occurrence: None)
  Receive Date: 20080922
  Receipt Date: 20080909
  Transmission Date: 20090109
  Serious: Yes (Other)
  Sender: FDA-Public Use
  Company Number: JP-ELI_LILLY_AND_COMPANY-JP200807004506

PATIENT
  Age: 80 Year
  Sex: Female

DRUGS (2)
  1. EVISTA [Suspect]
     Indication: OSTEOPOROSIS POSTMENOPAUSAL
     Dosage: 60 MG, DAILY (1/D)
     Route: 048
     Dates: start: 20040703, end: 20080717
  2. MOBIC [Concomitant]
     Dosage: UNK, UNK
     Route: 048
     Dates: end: 20080717

REACTIONS (1)
  - THROMBOCYTOPENIA [None]
